FAERS Safety Report 26200794 (Version 1)
Quarter: 2025Q4

REPORT INFORMATION
  Report Type: Spontaneous
  Country: US (occurrence: US)
  Receive Date: 20251226
  Receipt Date: 20251226
  Transmission Date: 20260117
  Serious: Yes (Hospitalization)
  Sender: ROCHE
  Company Number: US-ROCHE-10000466100

PATIENT
  Sex: Female

DRUGS (11)
  1. XOLAIR [Suspect]
     Active Substance: OMALIZUMAB
     Indication: Asthma
     Dosage: STRENGTH 150 MG/ML
     Route: 058
     Dates: start: 20250506
  2. ACYCLOVIR [Concomitant]
     Active Substance: ACYCLOVIR
  3. AZELASTINE [Concomitant]
     Active Substance: AZELASTINE
  4. COREG CR [Concomitant]
     Active Substance: CARVEDILOL PHOSPHATE
  5. DONNATAL [Concomitant]
     Active Substance: ATROPINE SULFATE\HYOSCYAMINE SULFATE\PHENOBARBITAL\SCOPOLAMINE HYDROBROMIDE
  6. HYALURONIC ACID [Concomitant]
     Active Substance: HYALURONIC ACID
  7. epipen 2- pak [Concomitant]
  8. LEXISCAN [Concomitant]
     Active Substance: REGADENOSON
  9. LIDOCAINE [Concomitant]
     Active Substance: LIDOCAINE
  10. MONTELUKAST SODIUM [Concomitant]
     Active Substance: MONTELUKAST SODIUM
  11. PRAVASTATIN SODIUM [Concomitant]
     Active Substance: PRAVASTATIN SODIUM

REACTIONS (1)
  - Nephrolithiasis [Unknown]
